FAERS Safety Report 8551651-4 (Version None)
Quarter: 2012Q3

REPORT INFORMATION
  Report Type: 
  Country: None (occurrence: None)
  Receive Date: 20120730
  Receipt Date: 20120725
  Transmission Date: 20120928
  Serious: No
  Sender: FDA-Public Use
  Company Number: US-TEVA-350388USA

PATIENT
  Sex: Male
  Weight: 123.94 kg

DRUGS (10)
  1. LEVOTHYROXINE SODIUM [Concomitant]
     Indication: THYROID DISORDER
  2. VITAMIN D [Concomitant]
  3. NUVIGIL [Suspect]
     Indication: SLEEP APNOEA SYNDROME
     Dosage: 150 MILLIGRAM;
     Route: 048
     Dates: start: 20120724
  4. ATORVASTATIN [Concomitant]
  5. MULTI-VITAMIN [Concomitant]
  6. VITAMIN B12 NOS [Concomitant]
  7. TOPROL-XL [Concomitant]
  8. COUMADIN [Concomitant]
  9. MAGNESIUM SULFATE [Concomitant]
  10. ASPIRIN [Concomitant]

REACTIONS (1)
  - INSOMNIA [None]
